FAERS Safety Report 9908768 (Version 2)
Quarter: 2014Q2

REPORT INFORMATION
  Report Type: Spontaneous
  Country: US (occurrence: US)
  Receive Date: 20140219
  Receipt Date: 20140404
  Transmission Date: 20141212
  Serious: No
  Sender: FDA-Public Use
  Company Number: US-PFIZER INC-2014044146

PATIENT
  Age: 47 Year
  Sex: Male
  Weight: 69.84 kg

DRUGS (4)
  1. VIAGRA [Suspect]
     Indication: ERECTILE DYSFUNCTION
     Dosage: 100 MG, AS NEEDED
     Route: 048
  2. VIAGRA [Suspect]
     Dosage: UNK (USING HALF OR TWO THIRD TABLET OF 100 MG)
     Route: 048
  3. VIAGRA [Suspect]
     Dosage: 50 MG (HALF TABLET OF VIAGRA 100MG) , UNK
     Route: 048
  4. VIAGRA [Suspect]
     Dosage: 150 MG (ONE AND HALF TABLET OF VIAGRA 100MG), UNK
     Route: 048

REACTIONS (8)
  - Nasal congestion [Unknown]
  - Dyspepsia [Unknown]
  - Gastrooesophageal reflux disease [Unknown]
  - Headache [Unknown]
  - Chromatopsia [Unknown]
  - Product quality issue [Unknown]
  - Drug ineffective [Unknown]
  - Extra dose administered [Unknown]
